FAERS Safety Report 16350473 (Version 1)
Quarter: 2019Q2

REPORT INFORMATION
  Report Type: Spontaneous
  Country: GB (occurrence: GB)
  Receive Date: 20190524
  Receipt Date: 20190524
  Transmission Date: 20190711
  Serious: Yes (Life-Threatening, Other)
  Sender: FDA-Public Use
  Company Number: GB-ACCORD-127910

PATIENT
  Age: 40 Year
  Sex: Female
  Weight: 132.4 kg

DRUGS (15)
  1. EPIPEN [Concomitant]
     Active Substance: EPINEPHRINE
     Dosage: 300MICROGRAMS/0.3ML
     Dates: start: 20190114
  2. ACETAZOLAMIDE. [Concomitant]
     Active Substance: ACETAZOLAMIDE
     Dates: start: 20190125
  3. TOPIRAMATE. [Concomitant]
     Active Substance: TOPIRAMATE
     Dates: start: 20190125
  4. IBUPROFEN. [Concomitant]
     Active Substance: IBUPROFEN
     Dates: start: 20181224
  5. PROPRANOLOL [Concomitant]
     Active Substance: PROPRANOLOL HYDROCHLORIDE
     Dates: start: 20190125
  6. ZOLMITRIPTAN. [Concomitant]
     Active Substance: ZOLMITRIPTAN
     Dosage: MAX 2 IN 24 HOURS
     Dates: start: 20190111
  7. CETIRIZINE [Concomitant]
     Active Substance: CETIRIZINE HYDROCHLORIDE
     Dates: start: 20190125
  8. QUETIAPINE. [Suspect]
     Active Substance: QUETIAPINE
     Indication: PRODUCT USED FOR UNKNOWN INDICATION
  9. ARIPIPRAZOLE. [Concomitant]
     Active Substance: ARIPIPRAZOLE
     Dosage: 1 WEEK THEN DOSE INCREASES
     Dates: start: 20190130
  10. PARACETAMOL [Concomitant]
     Active Substance: ACETAMINOPHEN
     Dosage: FOUR TIMES A DAY
     Dates: start: 20190125
  11. DIAZEPAM. [Concomitant]
     Active Substance: DIAZEPAM
     Dosage: FOR 2 WEEKS ONLY
     Dates: start: 20190206
  12. AMLODIPINE [Concomitant]
     Active Substance: AMLODIPINE BESYLATE
     Dates: start: 20190125
  13. OMEPRAZOLE. [Concomitant]
     Active Substance: OMEPRAZOLE
     Dates: start: 20190301
  14. FLUOXETINE [Concomitant]
     Active Substance: FLUOXETINE HYDROCHLORIDE
     Dates: start: 20190125
  15. FOLIC ACID. [Concomitant]
     Active Substance: FOLIC ACID
     Dosage: FOR FOUR MONTHS
     Dates: start: 20181224

REACTIONS (1)
  - Anaphylactic shock [Recovered/Resolved]

NARRATIVE: CASE EVENT DATE: 20190112
